FAERS Safety Report 5195477-0 (Version None)
Quarter: 2006Q4

REPORT INFORMATION
  Report Type: 
  Country: None (occurrence: None)
  Receive Date: 20061222
  Receipt Date: 20061222
  Transmission Date: 20070319
  Serious: No
  Sender: FDA-Public Use
  Company Number: None

PATIENT
  Age: 55 Year
  Sex: Female
  Weight: 104.3273 kg

DRUGS (7)
  1. SULFAMETHOXAZOLE [Suspect]
     Indication: URINARY TRACT INFECTION
     Dosage: 800MG
     Dates: start: 20061023, end: 20061023
  2. TRIMETHOPRIM [Suspect]
     Dosage: 160MG
  3. LISINOPRIL [Concomitant]
  4. WELLBUTRIN [Concomitant]
  5. HORMONE REPLACEMENT [Concomitant]
  6. METFORMIN HCL [Concomitant]
  7. PROGESTERONE [Concomitant]

REACTIONS (6)
  - FLUSHING [None]
  - MALAISE [None]
  - PAIN [None]
  - PRURITUS [None]
  - RASH PAPULAR [None]
  - SWELLING FACE [None]
